FAERS Safety Report 21621216 (Version 2)
Quarter: 2023Q2

REPORT INFORMATION
  Report Type: Spontaneous
  Country: US (occurrence: US)
  Receive Date: 20221121
  Receipt Date: 20230420
  Transmission Date: 20230722
  Serious: No
  Sender: FDA-Public Use
  Company Number: US-BRISTOL-MYERS SQUIBB COMPANY-2022-140476

PATIENT
  Age: 71 Year
  Sex: Female
  Weight: 85.73 kg

DRUGS (1)
  1. REVLIMID [Suspect]
     Active Substance: LENALIDOMIDE
     Indication: Plasma cell myeloma
     Dosage: FREQUENCY-DAILY FOR 14 DAYS
     Route: 048
     Dates: start: 20190501

REACTIONS (5)
  - Upper respiratory tract infection [Unknown]
  - Pyrexia [Unknown]
  - Off label use [Unknown]
  - Metapneumovirus infection [Unknown]
  - Coronavirus infection [Unknown]

NARRATIVE: CASE EVENT DATE: 20221105
